FAERS Safety Report 24391672 (Version 1)
Quarter: 2024Q4

REPORT INFORMATION
  Report Type: Report from Study
  Country: ZA (occurrence: ZA)
  Receive Date: 20241003
  Receipt Date: 20241003
  Transmission Date: 20250114
  Serious: Yes (Other)
  Sender: ALEXION PHARMACEUTICALS
  Company Number: ZA-AstraZeneca-CH-00709178A

PATIENT

DRUGS (36)
  1. DAPAGLIFLOZIN [Suspect]
     Active Substance: DAPAGLIFLOZIN
     Indication: Diabetes mellitus
  2. DAPAGLIFLOZIN [Suspect]
     Active Substance: DAPAGLIFLOZIN
  3. DAPAGLIFLOZIN [Suspect]
     Active Substance: DAPAGLIFLOZIN
  4. DAPAGLIFLOZIN [Suspect]
     Active Substance: DAPAGLIFLOZIN
  5. PERINDOPRIL [Concomitant]
     Active Substance: PERINDOPRIL
     Indication: Hypertension
  6. PERINDOPRIL [Concomitant]
     Active Substance: PERINDOPRIL
  7. PERINDOPRIL [Concomitant]
     Active Substance: PERINDOPRIL
  8. PERINDOPRIL [Concomitant]
     Active Substance: PERINDOPRIL
  9. RIVAROXABAN [Concomitant]
     Active Substance: RIVAROXABAN
  10. RIVAROXABAN [Concomitant]
     Active Substance: RIVAROXABAN
  11. RIVAROXABAN [Concomitant]
     Active Substance: RIVAROXABAN
  12. RIVAROXABAN [Concomitant]
     Active Substance: RIVAROXABAN
  13. UROMAX [Concomitant]
     Indication: Prostatomegaly
  14. UROMAX [Concomitant]
  15. UROMAX [Concomitant]
  16. UROMAX [Concomitant]
  17. POTASSIUM CHLORIDE [Concomitant]
     Active Substance: POTASSIUM CHLORIDE
     Indication: Hypokalaemia
  18. POTASSIUM CHLORIDE [Concomitant]
     Active Substance: POTASSIUM CHLORIDE
  19. POTASSIUM CHLORIDE [Concomitant]
     Active Substance: POTASSIUM CHLORIDE
  20. POTASSIUM CHLORIDE [Concomitant]
     Active Substance: POTASSIUM CHLORIDE
  21. FINASTERIDE [Concomitant]
     Active Substance: FINASTERIDE
     Indication: Benign prostatic hyperplasia
  22. FINASTERIDE [Concomitant]
     Active Substance: FINASTERIDE
  23. FINASTERIDE [Concomitant]
     Active Substance: FINASTERIDE
  24. FINASTERIDE [Concomitant]
     Active Substance: FINASTERIDE
  25. ALDACTONE [Concomitant]
     Active Substance: SPIRONOLACTONE
     Indication: Hypertension
  26. ALDACTONE [Concomitant]
     Active Substance: SPIRONOLACTONE
  27. ALDACTONE [Concomitant]
     Active Substance: SPIRONOLACTONE
  28. ALDACTONE [Concomitant]
     Active Substance: SPIRONOLACTONE
  29. GLUCOPHAGE XR [Concomitant]
     Active Substance: METFORMIN HYDROCHLORIDE
     Indication: Diabetes mellitus
  30. GLUCOPHAGE XR [Concomitant]
     Active Substance: METFORMIN HYDROCHLORIDE
  31. GLUCOPHAGE XR [Concomitant]
     Active Substance: METFORMIN HYDROCHLORIDE
  32. GLUCOPHAGE XR [Concomitant]
     Active Substance: METFORMIN HYDROCHLORIDE
  33. FUROSEMIDE [Concomitant]
     Active Substance: FUROSEMIDE
     Indication: Hypertension
  34. FUROSEMIDE [Concomitant]
     Active Substance: FUROSEMIDE
  35. FUROSEMIDE [Concomitant]
     Active Substance: FUROSEMIDE
  36. FUROSEMIDE [Concomitant]
     Active Substance: FUROSEMIDE

REACTIONS (2)
  - Paralysis [Unknown]
  - Gait disturbance [Unknown]
